FAERS Safety Report 25768278 (Version 1)
Quarter: 2025Q3

REPORT INFORMATION
  Report Type: Spontaneous
  Country: US (occurrence: US)
  Receive Date: 20250905
  Receipt Date: 20250905
  Transmission Date: 20251020
  Serious: No
  Sender: DOMPE FARMACEUTICI
  Company Number: US-FARMAPROD-202506-1988

PATIENT
  Sex: Female
  Weight: 80.74 kg

DRUGS (11)
  1. OXERVATE [Suspect]
     Active Substance: CENEGERMIN-BKBJ
     Indication: Neurotrophic keratopathy
     Route: 047
     Dates: start: 20250607
  2. EPINEPHRINE [Concomitant]
     Active Substance: EPINEPHRINE
  3. MELOXICAM [Concomitant]
     Active Substance: MELOXICAM
  4. VYVANSE [Concomitant]
     Active Substance: LISDEXAMFETAMINE DIMESYLATE
  5. BUPROPION [Concomitant]
     Active Substance: BUPROPION
  6. TOPIRAMATE [Concomitant]
     Active Substance: TOPIRAMATE
  7. ZEPBOUND [Concomitant]
     Active Substance: TIRZEPATIDE
  8. ESCITALOPRAM OXALATE [Concomitant]
     Active Substance: ESCITALOPRAM OXALATE
  9. NALTREXONE HYDROCHLORIDE [Concomitant]
     Active Substance: NALTREXONE HYDROCHLORIDE
  10. CETIRIZINE HCL [Concomitant]
     Active Substance: CETIRIZINE HYDROCHLORIDE
  11. DICLOFENAC SODIUM [Concomitant]
     Active Substance: DICLOFENAC SODIUM

REACTIONS (2)
  - Eye pain [Unknown]
  - Dry eye [Unknown]
